FAERS Safety Report 8570360-9 (Version None)
Quarter: 2012Q3

REPORT INFORMATION
  Report Type: 
  Country: None (occurrence: None)
  Receive Date: 20120803
  Receipt Date: 20120224
  Transmission Date: 20120928
  Serious: No
  Sender: FDA-Public Use
  Company Number: US-ABBOTT-12P-163-0909014-00

PATIENT
  Sex: Male

DRUGS (2)
  1. NIASPAN [Suspect]
     Indication: STENT PLACEMENT
  2. NIASPAN [Suspect]
     Indication: MYOCARDIAL INFARCTION
     Dates: start: 20090401

REACTIONS (5)
  - ABNORMAL DREAMS [None]
  - FEELING HOT [None]
  - BACK PAIN [None]
  - ANXIETY [None]
  - PAIN [None]
